FAERS Safety Report 24648875 (Version 1)
Quarter: 2024Q4

REPORT INFORMATION
  Report Type: Spontaneous
  Country: US (occurrence: US)
  Receive Date: 20241121
  Receipt Date: 20241121
  Transmission Date: 20250115
  Serious: No
  Sender: ALVOGEN
  Company Number: US-ALVOGEN-2023092674

PATIENT
  Sex: Female

DRUGS (2)
  1. TERIPARATIDE [Suspect]
     Active Substance: TERIPARATIDE
     Indication: Product used for unknown indication
     Dosage: WAS TAKING FROM ONE AND HALF YEARS
  2. TERIPARATIDE [Suspect]
     Active Substance: TERIPARATIDE
     Indication: Product used for unknown indication
     Dosage: GTIN: 00347781-652-890?EXPIRATION DATE: UU-SEP-2024?STRENGTH: 250 UG/ML

REACTIONS (4)
  - Device malfunction [Unknown]
  - Device operational issue [Unknown]
  - Device defective [Unknown]
  - Incorrect dose administered by device [Unknown]
